FAERS Safety Report 22158022 (Version 1)
Quarter: 2023Q1

REPORT INFORMATION
  Report Type: Spontaneous
  Country: US (occurrence: US)
  Receive Date: 20230330
  Receipt Date: 20230330
  Transmission Date: 20230418
  Serious: Yes (Other)
  Sender: FDA-Public Use
  Company Number: US-TEVA-2023-US-2870038

PATIENT
  Age: 43 Year
  Sex: Male

DRUGS (11)
  1. DOXORUBICIN [Suspect]
     Active Substance: DOXORUBICIN
     Indication: Plasmablastic lymphoma
     Dosage: 10 MG/M2 RECEIVED DURING CYCLE 1 AND 2
     Route: 065
  2. DOXORUBICIN [Suspect]
     Active Substance: DOXORUBICIN
     Dosage: 12 MG/M2 RECEIVED DURING CYCLE 3
     Route: 065
  3. ETOPOSIDE [Suspect]
     Active Substance: ETOPOSIDE
     Indication: Plasmablastic lymphoma
     Dosage: 50 MG/M2 RECEIVED DURING CYCLE 1 AND 2
     Route: 065
  4. ETOPOSIDE [Suspect]
     Active Substance: ETOPOSIDE
     Dosage: 60 MG/M2 RECEIVED DURING CYCLE 3
     Route: 065
  5. VINCRISTINE [Suspect]
     Active Substance: VINCRISTINE
     Indication: Plasmablastic lymphoma
     Dosage: 0.4 MG/M2 RECEIVED DURING CYCLE 1-3
     Route: 065
  6. METHOTREXATE [Suspect]
     Active Substance: METHOTREXATE
     Indication: Plasmablastic lymphoma
     Dosage: 12 MG RECEIVED DURING CYCLE 1-3
     Route: 037
  7. CYCLOPHOSPHAMIDE [Suspect]
     Active Substance: CYCLOPHOSPHAMIDE
     Indication: Plasmablastic lymphoma
     Dosage: 375 MG/M2 RECEIVED DURING CYCLE 1-3
     Route: 065
  8. DARATUMUMAB [Suspect]
     Active Substance: DARATUMUMAB
     Indication: Plasmablastic lymphoma
     Dosage: 16 MG/KG RECEIVED ON DAY 1 DURING CYCLE 1-2 AND ON DAY 1 AND DAY 5 DURING CYCLE 3
     Route: 050
  9. DIPHENHYDRAMINE [Concomitant]
     Active Substance: DIPHENHYDRAMINE
     Indication: Infusion related reaction
     Route: 065
  10. DIPHENHYDRAMINE [Concomitant]
     Active Substance: DIPHENHYDRAMINE
     Indication: Pruritus
  11. DIPHENHYDRAMINE [Concomitant]
     Active Substance: DIPHENHYDRAMINE
     Indication: Rash

REACTIONS (7)
  - Parainfluenzae virus infection [Unknown]
  - Respiratory syncytial virus infection [Unknown]
  - Chronic obstructive pulmonary disease [Unknown]
  - Infusion related reaction [Unknown]
  - Drug eruption [Unknown]
  - Pruritus allergic [Unknown]
  - Off label use [Unknown]
